FAERS Safety Report 9184102 (Version 2)
Quarter: 2014Q1

REPORT INFORMATION
  Report Type: Spontaneous
  Country: US (occurrence: US)
  Receive Date: 20130322
  Receipt Date: 20140318
  Transmission Date: 20141002
  Serious: Yes (Other)
  Sender: FDA-Public Use
  Company Number: US-BRISTOL-MYERS SQUIBB COMPANY-17319203

PATIENT
  Age: 71 Year
  Sex: Male
  Weight: 139.68 kg

DRUGS (3)
  1. ERBITUX [Suspect]
     Indication: COLON CANCER STAGE IV
     Route: 042
     Dates: start: 201301
  2. WARFARIN [Concomitant]
     Indication: THROMBOSIS
  3. DOXYCYCLINE [Concomitant]

REACTIONS (2)
  - Rash [Recovering/Resolving]
  - Weight increased [Unknown]
